FAERS Safety Report 14950351 (Version 2)
Quarter: 2018Q2

REPORT INFORMATION
  Report Type: Report from Study
  Country: US (occurrence: US)
  Receive Date: 20180530
  Receipt Date: 20180606
  Transmission Date: 20180711
  Serious: Yes (Hospitalization, Other)
  Sender: FDA-Public Use
  Company Number: US-AMGEN-USASP2018070914

PATIENT
  Age: 57 Year
  Sex: Female

DRUGS (3)
  1. LASIX [Concomitant]
     Active Substance: FUROSEMIDE
     Dosage: UNK
  2. ENBREL [Suspect]
     Active Substance: ETANERCEPT
     Dosage: 50 MG, QWK
     Route: 065
     Dates: start: 2017
  3. ENBREL [Suspect]
     Active Substance: ETANERCEPT
     Indication: RHEUMATOID ARTHRITIS
     Dosage: 50 MG, QWK
     Route: 065
     Dates: end: 2017

REACTIONS (9)
  - Pulmonary calcification [Unknown]
  - Wrong technique in product usage process [Unknown]
  - Sleep disorder due to general medical condition, insomnia type [Unknown]
  - Rheumatoid arthritis [Unknown]
  - Shoulder arthroplasty [Unknown]
  - Migraine [Unknown]
  - Drug effect incomplete [Unknown]
  - Pleurisy [Unknown]
  - Blood pressure abnormal [Unknown]

NARRATIVE: CASE EVENT DATE: 201710
